FAERS Safety Report 9166502 (Version 3)
Quarter: 2013Q3

REPORT INFORMATION
  Report Type: Spontaneous
  Country: IE (occurrence: IE)
  Receive Date: 20130315
  Receipt Date: 20130930
  Transmission Date: 20140515
  Serious: Yes (Other)
  Sender: FDA-Public Use
  Company Number: IE-PFIZER INC-2013085594

PATIENT
  Age: 15 Year
  Sex: Female

DRUGS (3)
  1. GENOTROPIN [Suspect]
     Indication: TURNER^S SYNDROME
     Dosage: 2.55 MG, NIGHTLY
     Route: 058
     Dates: start: 20130311, end: 20130312
  2. GENOTROPIN [Suspect]
     Dosage: 1.2 MG, UNK
     Route: 058
     Dates: start: 201303
  3. GENOTROPIN [Suspect]
     Dosage: 2.55 MG, UNK
     Route: 058
     Dates: start: 2013

REACTIONS (5)
  - Blindness [Recovered/Resolved]
  - Vision blurred [Recovered/Resolved]
  - Heart rate increased [Recovered/Resolved]
  - Vomiting [Recovered/Resolved]
  - Headache [Recovered/Resolved]
